FAERS Safety Report 7276645-0 (Version None)
Quarter: 2011Q1

REPORT INFORMATION
  Report Type: 
  Country: None (occurrence: None)
  Receive Date: 20110204
  Receipt Date: 20110124
  Transmission Date: 20110831
  Serious: Yes (Hospitalization)
  Sender: FDA-Public Use
  Company Number: DE-RB-020722-11

PATIENT
  Age: 31 Year
  Sex: Male
  Weight: 192 kg

DRUGS (4)
  1. RISPERIDON [Suspect]
     Indication: SCHIZOPHRENIA, PARANOID TYPE
     Route: 065
     Dates: start: 20070901
  2. SUBOXONE [Suspect]
     Indication: DRUG DEPENDENCE
     Dosage: DOSING DETAILS UNKNOWN
     Route: 065
     Dates: start: 20091215
  3. DIAZEPAM [Suspect]
     Indication: ANXIETY
     Route: 065
     Dates: start: 20091228
  4. RISPERIDON [Suspect]
     Dosage: DOSING DETAILS UNKNOWN
     Route: 065
     Dates: start: 20100803

REACTIONS (1)
  - CONDITION AGGRAVATED [None]
